FAERS Safety Report 13160644 (Version 3)
Quarter: 2017Q3

REPORT INFORMATION
  Report Type: Spontaneous
  Country: CH (occurrence: CH)
  Receive Date: 20170129
  Receipt Date: 20170808
  Transmission Date: 20171127
  Serious: Yes (Hospitalization, Disabling, Other)
  Sender: FDA-Public Use
  Company Number: PHHY2017CH009531

PATIENT
  Sex: Male

DRUGS (4)
  1. STELARA [Suspect]
     Active Substance: USTEKINUMAB
     Indication: PSORIASIS
  2. VALACYCLOVIR [Concomitant]
     Active Substance: VALACYCLOVIR HYDROCHLORIDE
     Indication: HERPES ZOSTER
     Route: 065
     Dates: start: 201311
  3. STELARA [Suspect]
     Active Substance: USTEKINUMAB
     Indication: SKIN CANDIDA
     Route: 065
     Dates: start: 201201
  4. COSENTYX [Suspect]
     Active Substance: SECUKINUMAB
     Indication: PSORIASIS
     Dosage: UNK UNK, QMO
     Route: 058
     Dates: start: 201508, end: 201612

REACTIONS (11)
  - Wound infection [Recovered/Resolved with Sequelae]
  - Ascites [Unknown]
  - Nausea [Unknown]
  - Atrial fibrillation [Recovered/Resolved with Sequelae]
  - Subclavian vein thrombosis [Recovered/Resolved with Sequelae]
  - Hepatic cirrhosis [Recovered/Resolved with Sequelae]
  - Cerebral infarction [Recovering/Resolving]
  - Fall [Unknown]
  - Mental status changes [Unknown]
  - Jugular vein thrombosis [Recovered/Resolved with Sequelae]
  - Red blood cell macrocytes present [Unknown]

NARRATIVE: CASE EVENT DATE: 20170309
